FAERS Safety Report 6149249-0 (Version None)
Quarter: 2009Q2

REPORT INFORMATION
  Report Type: 
  Country: None (occurrence: None)
  Receive Date: 20090406
  Receipt Date: 20090406
  Transmission Date: 20091009
  Serious: Yes (Other)
  Sender: FDA-Public Use
  Company Number: None

PATIENT
  Age: 47 Year
  Sex: Female
  Weight: 68.9467 kg

DRUGS (1)
  1. TRETINOIN [Suspect]
     Indication: ACTINIC KERATOSIS
     Dosage: PEA-SIZED EJECTION 2 X PER WEEK OTHER
     Route: 050
     Dates: start: 20090324, end: 20090331

REACTIONS (2)
  - DECREASED INTEREST [None]
  - DEPRESSION [None]
